FAERS Safety Report 5179944-1 (Version None)
Quarter: 2006Q4

REPORT INFORMATION
  Report Type: 
  Country: None (occurrence: None)
  Receive Date: 20061212
  Receipt Date: 20061127
  Transmission Date: 20070319
  Serious: Yes (Other)
  Sender: FDA-Public Use
  Company Number: S06-CAN-05117-01

PATIENT
  Age: 26 Year
  Sex: Female

DRUGS (2)
  1. CELEXA [Suspect]
  2. LAMICTAL [Suspect]

REACTIONS (2)
  - FAECES DISCOLOURED [None]
  - SKIN DISORDER [None]
